FAERS Safety Report 8334179-6 (Version None)
Quarter: 2012Q2

REPORT INFORMATION
  Report Type: 
  Country: None (occurrence: None)
  Receive Date: 20120503
  Receipt Date: 20120427
  Transmission Date: 20120825
  Serious: Yes (Death, Hospitalization)
  Sender: FDA-Public Use
  Company Number: FR-UCBSA-055585

PATIENT
  Age: 76 Year
  Sex: Female

DRUGS (7)
  1. CALCIUM HEPARIN [Concomitant]
     Route: 058
     Dates: start: 20111019, end: 20120108
  2. KEPPRA [Suspect]
     Route: 042
     Dates: start: 20111020, end: 20111221
  3. CEFTAZIDIME [Suspect]
     Route: 042
     Dates: start: 20111218, end: 20111221
  4. NICARDIPINE HYDROCHLORIDE [Concomitant]
     Route: 042
     Dates: start: 20111206, end: 20120108
  5. LASIX [Suspect]
     Route: 042
     Dates: start: 20111208, end: 20111220
  6. AMIKACIN [Suspect]
     Route: 042
     Dates: start: 20111219, end: 20111220
  7. PAROXETINE HYDROCHLORIDE [Suspect]
     Route: 048
     Dates: start: 20111206, end: 20111221

REACTIONS (11)
  - RESPIRATORY DISTRESS [None]
  - LUNG DISORDER [None]
  - SEPTIC SHOCK [None]
  - RENAL FAILURE [None]
  - TOXIC SKIN ERUPTION [None]
  - MENINGITIS BACTERIAL [None]
  - DEATH [None]
  - HYDROCEPHALUS [None]
  - ISCHAEMIA [None]
  - NEUROLOGICAL DECOMPENSATION [None]
  - COMA [None]
